FAERS Safety Report 8428723-8 (Version None)
Quarter: 2012Q2

REPORT INFORMATION
  Report Type: 
  Country: None (occurrence: None)
  Receive Date: 20120612
  Receipt Date: 20120528
  Transmission Date: 20120825
  Serious: Yes (Other)
  Sender: FDA-Public Use
  Company Number: BR-AMGEN-BRASP2012024800

PATIENT
  Age: 80 Year
  Sex: Female
  Weight: 53 kg

DRUGS (7)
  1. ENBREL [Suspect]
     Indication: RHEUMATOID ARTHRITIS
     Dosage: 50 MG, ONCE WEEKLY
     Route: 058
     Dates: start: 20100301, end: 20110801
  2. DICLOFENAC SODIUM [Concomitant]
     Dosage: UNK
  3. ALENDRONATE SODIUM [Concomitant]
     Dosage: UNK DOSE ONCE WEEKLY
  4. OMEPRAZOLE [Concomitant]
     Dosage: UNK
  5. SERTRALINE HYDROCHLORIDE [Concomitant]
     Dosage: UNK
  6. DICLOFENAC SODIUM [Concomitant]
     Dosage: UNK
  7. DIOVAN [Concomitant]
     Dosage: UNK

REACTIONS (4)
  - NO THERAPEUTIC RESPONSE [None]
  - PAIN [None]
  - BONE DISORDER [None]
  - BONE DEFORMITY [None]
